FAERS Safety Report 6504621-1 (Version None)
Quarter: 2009Q4

REPORT INFORMATION
  Report Type: 
  Country: None (occurrence: None)
  Receive Date: 20091215
  Receipt Date: 20091202
  Transmission Date: 20100525
  Serious: Yes (Hospitalization, Other)
  Sender: FDA-Public Use
  Company Number: 2009AP004906

PATIENT
  Age: 22 Year
  Sex: Female

DRUGS (7)
  1. CYCLOSPORINE [Suspect]
     Indication: IMMUNOSUPPRESSION
  2. TACROLIMUS [Suspect]
     Indication: IMMUNOSUPPRESSION
  3. MESALAMINE [Concomitant]
  4. DEXBUDESONIDE [Concomitant]
  5. MERCAPTOPURINE [Concomitant]
  6. INFLIXIMAB [Concomitant]
  7. ADALIMUMAB [Concomitant]

REACTIONS (10)
  - ABDOMINAL DISTENSION [None]
  - ABDOMINAL PAIN [None]
  - ABDOMINAL TENDERNESS [None]
  - COLITIS [None]
  - DIARRHOEA [None]
  - EPSTEIN-BARR VIRUS ASSOCIATED LYMPHOPROLIFERATIVE DISORDER [None]
  - HAEMATOCHEZIA [None]
  - HYPOALBUMINAEMIA [None]
  - PSEUDOPOLYP [None]
  - WEIGHT DECREASED [None]
